FAERS Safety Report 11223278 (Version 3)
Quarter: 2015Q3

REPORT INFORMATION
  Report Type: Report from Study
  Country: GB (occurrence: GB)
  Receive Date: 20150626
  Receipt Date: 20150921
  Transmission Date: 20151125
  Serious: Yes (Hospitalization)
  Sender: FDA-Public Use
  Company Number: GB-BRISTOL-MYERS SQUIBB COMPANY-19391515

PATIENT
  Age: 64 Year
  Sex: Male

DRUGS (21)
  1. PLACEBO [Suspect]
     Active Substance: UNSPECIFIED INGREDIENT
     Dosage: 880 MG, UNK
     Route: 042
     Dates: start: 20130618, end: 20130819
  2. PLACEBO [Suspect]
     Active Substance: UNSPECIFIED INGREDIENT
     Dosage: 830 MG, UNK
     Route: 042
     Dates: start: 20130618, end: 20130730
  3. PLACEBO [Suspect]
     Active Substance: UNSPECIFIED INGREDIENT
     Indication: NON-SMALL CELL LUNG CANCER
     Dosage: 930 UNK, UNK
     Route: 042
     Dates: start: 20130730, end: 20130730
  4. BLINDED PACLITAXEL [Suspect]
     Active Substance: PACLITAXEL
     Indication: NON-SMALL CELL LUNG CANCER
     Dosage: 350 MG, UNK
     Route: 042
     Dates: start: 20130507, end: 20130819
  5. BLINDED IPILIMUMAB [Suspect]
     Active Substance: IPILIMUMAB
     Dosage: 372 UNK, UNK
     Route: 042
     Dates: start: 20130618, end: 20130730
  6. SIMVASTATIN. [Concomitant]
     Active Substance: SIMVASTATIN
     Indication: PRODUCT USED FOR UNKNOWN INDICATION
     Route: 065
  7. BLINDED IPILIMUMAB [Suspect]
     Active Substance: IPILIMUMAB
     Dosage: 880 MG, UNK
     Route: 042
     Dates: start: 20130618, end: 20130819
  8. PLACEBO [Suspect]
     Active Substance: UNSPECIFIED INGREDIENT
     Dosage: 372 UNK, UNK
     Route: 042
     Dates: start: 20130618, end: 20130730
  9. BLINDED CARBOPLATIN [Suspect]
     Active Substance: CARBOPLATIN
     Dosage: 830 MG, UNK
     Route: 042
     Dates: start: 20130618, end: 20130730
  10. TIOTROPIUM BROMIDE [Concomitant]
     Active Substance: TIOTROPIUM BROMIDE
     Indication: PRODUCT USED FOR UNKNOWN INDICATION
     Route: 065
  11. PLACEBO [Suspect]
     Active Substance: UNSPECIFIED INGREDIENT
     Indication: NON-SMALL CELL LUNG CANCER
     Dosage: 750 MG, UNK
     Route: 042
     Dates: start: 20130507, end: 20130819
  12. LANSOPRAZOLE. [Concomitant]
     Active Substance: LANSOPRAZOLE
     Indication: PRODUCT USED FOR UNKNOWN INDICATION
     Dosage: UNK
     Route: 065
     Dates: start: 20130722
  13. BLINDED PACLITAXEL [Suspect]
     Active Substance: PACLITAXEL
     Dosage: 372 UNK, UNK
     Route: 042
     Dates: start: 20130618, end: 20130730
  14. BLINDED CARBOPLATIN [Suspect]
     Active Substance: CARBOPLATIN
     Indication: NON-SMALL CELL LUNG CANCER
     Dosage: 750 MG, UNK
     Route: 042
     Dates: start: 20130507, end: 20130819
  15. BLINDED IPILIMUMAB [Suspect]
     Active Substance: IPILIMUMAB
     Indication: NON-SMALL CELL LUNG CANCER
     Dosage: 350 MG, UNK
     Route: 042
     Dates: start: 20130507, end: 20130819
  16. PLACEBO [Suspect]
     Active Substance: UNSPECIFIED INGREDIENT
     Indication: NON-SMALL CELL LUNG CANCER
     Dosage: 350 MG, UNK
     Route: 042
     Dates: start: 20130507, end: 20130819
  17. SALBUTAMOL [Concomitant]
     Active Substance: ALBUTEROL
     Indication: PRODUCT USED FOR UNKNOWN INDICATION
     Route: 065
  18. BLINDED IPILIMUMAB [Suspect]
     Active Substance: IPILIMUMAB
     Indication: NON-SMALL CELL LUNG CANCER
     Dosage: 930 UNK, UNK
     Route: 042
     Dates: start: 20130730, end: 20130730
  19. BLINDED IPILIMUMAB [Suspect]
     Active Substance: IPILIMUMAB
     Indication: NON-SMALL CELL LUNG CANCER
     Dosage: 750 MG, UNK
     Route: 042
     Dates: start: 20130507, end: 20130819
  20. BLINDED IPILIMUMAB [Suspect]
     Active Substance: IPILIMUMAB
     Dosage: 830 MG, UNK
     Route: 042
     Dates: start: 20130618, end: 20130730
  21. AMITRIPTYLINE [Concomitant]
     Active Substance: AMITRIPTYLINE
     Indication: PRODUCT USED FOR UNKNOWN INDICATION
     Route: 065

REACTIONS (1)
  - Colitis [Recovered/Resolved with Sequelae]

NARRATIVE: CASE EVENT DATE: 20130910
